FAERS Safety Report 4516507-2 (Version None)
Quarter: 2004Q4

REPORT INFORMATION
  Report Type: 
  Country: None (occurrence: None)
  Receive Date: 20041027
  Receipt Date: 20040721
  Transmission Date: 20050328
  Serious: No
  Sender: FDA-Public Use
  Company Number: US084375

PATIENT
  Age: 78 Year
  Sex: Female
  Weight: 82 kg

DRUGS (8)
  1. SENSIPAR [Suspect]
     Indication: HYPERPARATHYROIDISM SECONDARY
     Dosage: 30 MG, 1 IN 1 DAYS, PO
     Route: 048
     Dates: start: 20040715, end: 20040718
  2. AMLODIPINE BESYLATE [Concomitant]
  3. SEVELAMER HCL [Concomitant]
  4. ATORVASTATIN CALCIUM [Concomitant]
  5. RANITIDINE HYDROCHLORIDE [Concomitant]
  6. ACETYLSALICYLIC ACID [Concomitant]
  7. NEPHRO-VITE [Concomitant]
  8. EPOGEN [Concomitant]

REACTIONS (3)
  - ANGER [None]
  - CONDITION AGGRAVATED [None]
  - CONFUSIONAL STATE [None]
